FAERS Safety Report 5641018-0 (Version None)
Quarter: 2008Q1

REPORT INFORMATION
  Report Type: 
  Country: None (occurrence: None)
  Receive Date: 20080227
  Receipt Date: 20080215
  Transmission Date: 20080703
  Serious: Yes (Other)
  Sender: FDA-Public Use
  Company Number: HQWYE430128MAR05

PATIENT
  Sex: Female

DRUGS (2)
  1. PREMARIN [Suspect]
     Dosage: UNKNOWN
     Route: 048
     Dates: start: 19870101, end: 19950101
  2. PROVERA [Suspect]
     Dosage: UNKNOWN
     Dates: start: 19870101, end: 19950101

REACTIONS (1)
  - BREAST CANCER METASTATIC [None]
